FAERS Safety Report 4995455-8 (Version None)
Quarter: 2006Q2

REPORT INFORMATION
  Report Type: 
  Country: None (occurrence: None)
  Receive Date: 20060508
  Receipt Date: 20060502
  Transmission Date: 20061013
  Serious: Yes (Life-Threatening)
  Sender: FDA-Public Use
  Company Number: US-BRISTOL-MYERS SQUIBB COMPANY-13364138

PATIENT
  Age: 82 Year
  Sex: Male

DRUGS (3)
  1. ERBITUX [Suspect]
     Indication: NEOPLASM MALIGNANT
     Dosage: FIRST INFUSION.
     Route: 042
     Dates: start: 20060502, end: 20060502
  2. DECADRON [Concomitant]
     Indication: PREMEDICATION
     Dates: start: 20060502, end: 20060502
  3. DIPHENHYDRAMINE HCL [Concomitant]
     Indication: PREMEDICATION
     Dates: start: 20060502, end: 20060502

REACTIONS (1)
  - BLOOD PRESSURE IMMEASURABLE [None]
